FAERS Safety Report 15677168 (Version 3)
Quarter: 2020Q1

REPORT INFORMATION
  Report Type: Spontaneous
  Country: US (occurrence: US)
  Receive Date: 20181130
  Receipt Date: 20200220
  Transmission Date: 20200409
  Serious: No
  Sender: FDA-Public Use
  Company Number: US-PFIZER INC-2018490463

PATIENT
  Age: 61 Year
  Sex: Female
  Weight: 62 kg

DRUGS (1)
  1. IBRANCE [Suspect]
     Active Substance: PALBOCICLIB
     Indication: BREAST CANCER STAGE IV
     Dosage: 125 MG, CYCLIC [21 DAYS AND THEN 7 DAYS OFF BY MOUTH, SHE WAS ON THE 7 DAYS OFF]
     Route: 048
     Dates: start: 201806

REACTIONS (9)
  - Paronychia [Unknown]
  - Influenza [Not Recovered/Not Resolved]
  - Pain [Unknown]
  - Pharyngeal inflammation [Unknown]
  - Eye inflammation [Unknown]
  - Malaise [Unknown]
  - Inflammation [Unknown]
  - Cough [Unknown]
  - Ear infection [Unknown]

NARRATIVE: CASE EVENT DATE: 2018
